FAERS Safety Report 8947690 (Version 1)
Quarter: 2012Q4

REPORT INFORMATION
  Report Type: 
  Country: GB (occurrence: GB)
  Receive Date: 20121205
  Receipt Date: 20121205
  Transmission Date: 20130627
  Serious: Yes (Hospitalization)
  Sender: FDA-Public Use
  Company Number: PHHY2012GB110599

PATIENT
  Age: 60 Year
  Sex: Male

DRUGS (9)
  1. AMIODARONE [Suspect]
     Indication: ARRHYTHMIA
     Dosage: Loading dose three times daily for 1 week, twice daily for 1 week then 200mg once daily after
     Route: 048
     Dates: start: 20121019
  2. AMIODARONE [Suspect]
     Dosage: Loading dose three times daily for 1 week, twice daily for 1 week then 200mg once daily after
     Route: 048
  3. AMIODARONE [Suspect]
     Dosage: Loading dose three times daily for 1 week, twice daily for 1 week then 200mg once daily after
     Route: 048
     Dates: end: 20121120
  4. SALBUTAMOL [Concomitant]
  5. LANSOPRAZOLE [Concomitant]
     Dosage: 30 mg, QD
  6. ASPIRIN [Concomitant]
     Dosage: 75 mg, QD
  7. CITALOPRAM [Concomitant]
     Dosage: 10 mg, QD
  8. TAZOCIN [Concomitant]
     Indication: AORTIC VALVE REPLACEMENT
  9. CIPROFLOXACIN [Concomitant]
     Indication: AORTIC VALVE REPLACEMENT

REACTIONS (5)
  - Metabolic alkalosis [Unknown]
  - Blood potassium decreased [Unknown]
  - Blood bicarbonate increased [Unknown]
  - Hypothyroidism [Recovering/Resolving]
  - Thyroxine decreased [Unknown]
